FAERS Safety Report 10432728 (Version 1)
Quarter: 2014Q3

REPORT INFORMATION
  Report Type: Spontaneous
  Country: US (occurrence: US)
  Receive Date: 20140905
  Receipt Date: 20140905
  Transmission Date: 20150326
  Serious: No
  Sender: FDA-Public Use
  Company Number: US-009507513-1408USA014672

PATIENT
  Sex: Male

DRUGS (3)
  1. ASMANEX [Suspect]
     Active Substance: MOMETASONE FUROATE
  2. NASACORT [Suspect]
     Active Substance: TRIAMCINOLONE ACETONIDE
  3. FLOMAX [Suspect]
     Active Substance: TAMSULOSIN HYDROCHLORIDE

REACTIONS (13)
  - Depression [Unknown]
  - Dysuria [Unknown]
  - Tremor [Unknown]
  - Wound [Unknown]
  - Bladder pain [Unknown]
  - Pelvic pain [Unknown]
  - Vision blurred [Unknown]
  - Nerve injury [Unknown]
  - Burning sensation [Unknown]
  - Influenza like illness [Unknown]
  - Hyperhidrosis [Unknown]
  - Anxiety [Unknown]
  - Pollakiuria [Unknown]
